FAERS Safety Report 20098798 (Version 2)
Quarter: 2021Q4

REPORT INFORMATION
  Report Type: Spontaneous
  Country: US (occurrence: US)
  Receive Date: 20211122
  Receipt Date: 20211125
  Transmission Date: 20220303
  Serious: No
  Sender: FDA-Public Use
  Company Number: US-NOVARTISTESTPH-NVSC2021US265705

PATIENT
  Sex: Female

DRUGS (6)
  1. EVEROLIMUS [Suspect]
     Active Substance: EVEROLIMUS
     Indication: Renal cancer
     Dosage: 5 MG
     Route: 048
     Dates: start: 20210917
  2. EVEROLIMUS [Suspect]
     Active Substance: EVEROLIMUS
     Indication: Metastases to liver
  3. EVEROLIMUS [Suspect]
     Active Substance: EVEROLIMUS
     Indication: Cholangiocarcinoma
  4. LENVATINIB [Concomitant]
     Active Substance: LENVATINIB
     Indication: Renal cancer
     Dosage: 10 MG
     Route: 048
     Dates: start: 20210917
  5. LENVATINIB [Concomitant]
     Active Substance: LENVATINIB
     Indication: Metastases to liver
  6. LENVATINIB [Concomitant]
     Active Substance: LENVATINIB
     Indication: Cholangiocarcinoma

REACTIONS (1)
  - Diarrhoea [Unknown]
